FAERS Safety Report 6235486-3 (Version None)
Quarter: 2009Q2

REPORT INFORMATION
  Report Type: 
  Country: None (occurrence: None)
  Receive Date: 20090618
  Receipt Date: 20080519
  Transmission Date: 20091009
  Serious: No
  Sender: FDA-Public Use
  Company Number: US-ASTRAZENECA-2008UW10281

PATIENT
  Age: 36 Year
  Sex: Female
  Weight: 59 kg

DRUGS (1)
  1. RHINOCORT [Suspect]
     Indication: HYPERSENSITIVITY
     Route: 045
     Dates: start: 20080504, end: 20080516

REACTIONS (1)
  - RASH [None]
